FAERS Safety Report 6661413-0 (Version None)
Quarter: 2010Q1

REPORT INFORMATION
  Report Type: 
  Country: None (occurrence: None)
  Receive Date: 20100331
  Receipt Date: 20100323
  Transmission Date: 20100710
  Serious: Yes (Hospitalization)
  Sender: FDA-Public Use
  Company Number: US-JNJFOC-20100307261

PATIENT
  Sex: Female
  Weight: 60.33 kg

DRUGS (6)
  1. DURAGESIC-100 [Suspect]
     Indication: NECK PAIN
     Route: 062
  2. DURAGESIC-100 [Suspect]
     Dosage: NDC NUMBER 50458-0092-05
     Route: 062
  3. SOMA [Concomitant]
     Indication: MUSCLE SPASMS
     Route: 048
  4. GABAPENTIN [Concomitant]
     Indication: NERVE INJURY
     Route: 048
  5. ABILIFY [Concomitant]
     Indication: BIPOLAR DISORDER
     Route: 048
  6. ALBUTEROL [Concomitant]
     Indication: ASTHMA
     Route: 055

REACTIONS (7)
  - ALCOHOL USE [None]
  - CONVULSION [None]
  - DRUG ADMINISTERED AT INAPPROPRIATE SITE [None]
  - DRUG EXPOSURE DURING PREGNANCY [None]
  - ECTOPIC PREGNANCY [None]
  - SOMNOLENCE [None]
  - WRONG TECHNIQUE IN DRUG USAGE PROCESS [None]
